FAERS Safety Report 19083459 (Version 1)
Quarter: 2021Q2

REPORT INFORMATION
  Report Type: Report from Study
  Country: ID (occurrence: ID)
  Receive Date: 20210401
  Receipt Date: 20210401
  Transmission Date: 20210717
  Serious: Yes (Death, Hospitalization, Other)
  Sender: FDA-Public Use
  Company Number: ID-ASTRAZENECA-2021A130604

PATIENT
  Age: 24989 Day
  Sex: Female

DRUGS (1)
  1. TAGRISSO [Suspect]
     Active Substance: OSIMERTINIB
     Indication: NON-SMALL CELL LUNG CANCER
     Route: 048
     Dates: start: 20200428

REACTIONS (4)
  - Death [Fatal]
  - Peripheral swelling [Unknown]
  - Haemoglobin abnormal [Unknown]
  - Asthenia [Unknown]

NARRATIVE: CASE EVENT DATE: 20210326
